FAERS Safety Report 6184386-6 (Version None)
Quarter: 2009Q2

REPORT INFORMATION
  Report Type: 
  Country: None (occurrence: None)
  Receive Date: 20090508
  Receipt Date: 20090501
  Transmission Date: 20091009
  Serious: Yes (Hospitalization)
  Sender: FDA-Public Use
  Company Number: A0782969A

PATIENT
  Age: 59 Year
  Sex: Male
  Weight: 97.7 kg

DRUGS (9)
  1. AVANDIA [Suspect]
     Indication: DIABETES MELLITUS
     Dosage: 8MG PER DAY
     Route: 048
     Dates: start: 20060701, end: 20070301
  2. METFORMIN HCL [Concomitant]
  3. METOPROLOL [Concomitant]
  4. ZOCOR [Concomitant]
  5. CATAPRES [Concomitant]
  6. DIOVAN [Concomitant]
  7. FLOMAX [Concomitant]
  8. LOTREL [Concomitant]
  9. NORVASC [Concomitant]

REACTIONS (2)
  - BRAIN INJURY [None]
  - CEREBROVASCULAR ACCIDENT [None]
